FAERS Safety Report 5335917-7 (Version None)
Quarter: 2007Q1

REPORT INFORMATION
  Report Type: 
  Country: None (occurrence: None)
  Receive Date: 20070302
  Receipt Date: 20061114
  Transmission Date: 20070707
  Serious: No
  Sender: FDA-Public Use
  Company Number: PHEH2006US14240

PATIENT
  Sex: Male

DRUGS (1)
  1. EXJADE [Suspect]
     Dosage: 1500 MG, QD, ORAL
     Route: 048

REACTIONS (4)
  - ABDOMINAL DISTENSION [None]
  - DYSPNOEA [None]
  - DYSURIA [None]
  - FLUID RETENTION [None]
